FAERS Safety Report 10410429 (Version 1)
Quarter: 2014Q3

REPORT INFORMATION
  Report Type: Spontaneous
  Country: JP (occurrence: JP)
  Receive Date: 20140826
  Receipt Date: 20140826
  Transmission Date: 20150326
  Serious: Yes (Death, Hospitalization)
  Sender: FDA-Public Use
  Company Number: PHHY2014JP104018

PATIENT
  Age: 80 Year
  Sex: Female

DRUGS (1)
  1. METHOTREXATE [Suspect]
     Active Substance: METHOTREXATE
     Indication: RHEUMATOID ARTHRITIS
     Route: 048

REACTIONS (6)
  - Lymphoproliferative disorder [Fatal]
  - B-cell lymphoma [Fatal]
  - Mass [Fatal]
  - Lymphadenopathy [Fatal]
  - Dyspnoea [Fatal]
  - Disease recurrence [Fatal]
